FAERS Safety Report 11319035 (Version 1)
Quarter: 2015Q3

REPORT INFORMATION
  Report Type: Spontaneous
  Country: US (occurrence: US)
  Receive Date: 20150729
  Receipt Date: 20150729
  Transmission Date: 20151125
  Serious: No
  Sender: FDA-Public Use
  Company Number: US-ACTELION PHARMACEUTICALS US, INC.-A-NJ2015-119018

PATIENT
  Age: 57 Year
  Sex: Female

DRUGS (2)
  1. SILDENAFIL. [Concomitant]
     Active Substance: SILDENAFIL
  2. OPSUMIT [Suspect]
     Active Substance: MACITENTAN
     Indication: PULMONARY HYPERTENSION
     Dosage: 10 MG, QD
     Route: 048
     Dates: start: 201503

REACTIONS (10)
  - Skin disorder [Unknown]
  - Pruritus [Unknown]
  - Dyspnoea [Unknown]
  - Nipple swelling [Unknown]
  - Gait disturbance [Unknown]
  - Breast enlargement [Unknown]
  - Weight increased [Unknown]
  - Breast inflammation [Unknown]
  - Abdominal distension [Unknown]
  - Peripheral swelling [Unknown]
